FAERS Safety Report 5141298-4 (Version None)
Quarter: 2006Q4

REPORT INFORMATION
  Report Type: 
  Country: None (occurrence: None)
  Receive Date: 20061101
  Receipt Date: 20061005
  Transmission Date: 20070319
  Serious: Yes (Other)
  Sender: FDA-Public Use
  Company Number: 2006CG01637

PATIENT
  Age: 19154 Day
  Sex: Male
  Weight: 78 kg

DRUGS (1)
  1. ZOMIG [Suspect]
     Indication: MIGRAINE
     Dosage: APPROXIMATELY ONE TABLET PER WEEK
     Route: 048
     Dates: start: 19980101, end: 20060620

REACTIONS (1)
  - ATRIAL FIBRILLATION [None]
